FAERS Safety Report 10656513 (Version 2)
Quarter: 2014Q4

REPORT INFORMATION
  Report Type: Spontaneous
  Country: US (occurrence: US)
  Receive Date: 20141216
  Receipt Date: 20141216
  Transmission Date: 20150529
  Serious: Yes (Hospitalization, Other)
  Sender: FDA-Public Use
  Company Number: US-GSKJP-DK201010887002

PATIENT
  Age: 71 Year
  Sex: Male
  Weight: 95 kg

DRUGS (4)
  1. VELCADE [Suspect]
     Active Substance: BORTEZOMIB
     Indication: PLASMA CELL MYELOMA
     Dosage: 2 MG, ON DAY1DAY4DAY18DAY21, EVERY 21 DAYS
     Route: 058
     Dates: start: 20100318, end: 20100408
  2. VELCADE [Suspect]
     Active Substance: BORTEZOMIB
     Dosage: UNK
  3. PREDNISONE. [Suspect]
     Active Substance: PREDNISONE
     Indication: PLASMA CELL MYELOMA
     Dosage: 120 MG, DAILY FOR 4 DAYS EVERY 6 WEEKS
     Route: 048
     Dates: start: 20100316, end: 20100319
  4. ALKERAN [Suspect]
     Active Substance: MELPHALAN
     Indication: PLASMA CELL MYELOMA
     Dosage: 18 MG DAILY, FOR 4 DAYS
     Route: 048
     Dates: start: 20100316, end: 20100319

REACTIONS (5)
  - Gastrointestinal haemorrhage [Unknown]
  - Dizziness [Unknown]
  - Hypertrophic cardiomyopathy [Recovered/Resolved]
  - Anaemia [Unknown]
  - Hypotension [Unknown]

NARRATIVE: CASE EVENT DATE: 20100331
